FAERS Safety Report 9280612 (Version 2)
Quarter: 2013Q2

REPORT INFORMATION
  Report Type: Spontaneous
  Country: SE (occurrence: None)
  Receive Date: 20130503
  Receipt Date: 20130521
  Transmission Date: 20140414
  Serious: Yes (Death, Life-Threatening)
  Sender: FDA-Public Use
  Company Number: MC201300216

PATIENT
  Age: 76 Year
  Sex: Male

DRUGS (7)
  1. ANGIOMAX, ANGIOX (BIVALIRUDIN) INJECTION [Suspect]
     Indication: PERCUTANEOUS CORONARY INTERVENTION
     Route: 042
     Dates: start: 20110608, end: 20110608
  2. ASPIRIN (ACETYLSALICYLIC ACID) [Concomitant]
  3. CLOPIDOGREL [Concomitant]
  4. HEPARIN [Concomitant]
  5. NOREPINEPHRINE [Concomitant]
  6. EPINEPHRINE BITARTRATE [Concomitant]
  7. CHOLESTEROL-AND TRIGLYCERIDE REDUCERS [Concomitant]

REACTIONS (7)
  - Cardiac tamponade [None]
  - Haemorrhage coronary artery [None]
  - Cardiac arrest [None]
  - Pulseless electrical activity [None]
  - Coronary artery perforation [None]
  - Multi-organ failure [None]
  - Poor peripheral circulation [None]
